FAERS Safety Report 6918835-X (Version None)
Quarter: 2010Q3

REPORT INFORMATION
  Report Type: 
  Country: None (occurrence: None)
  Receive Date: 20100811
  Receipt Date: 20100802
  Transmission Date: 20110219
  Serious: Yes (Hospitalization, Other)
  Sender: FDA-Public Use
  Company Number: FR-JNJFOC-20100702859

PATIENT
  Sex: Female
  Weight: 22 kg

DRUGS (11)
  1. TOPIRAMATE [Suspect]
     Indication: EPILEPSY
     Route: 048
  2. TOPIRAMATE [Suspect]
     Route: 048
  3. TOPIRAMATE [Suspect]
     Route: 048
  4. TOPIRAMATE [Suspect]
     Route: 048
  5. RIVOTRIL [Suspect]
     Indication: EPILEPSY
     Route: 065
  6. RIVOTRIL [Suspect]
     Route: 065
  7. RIVOTRIL [Suspect]
     Dosage: 8-10-8-10 GTT PER DAY
     Route: 065
  8. RIVOTRIL [Suspect]
     Route: 065
  9. RIVOTRIL [Suspect]
     Route: 065
  10. RIVOTRIL [Suspect]
     Route: 065
  11. RIVOTRIL [Suspect]
     Route: 065

REACTIONS (3)
  - COMA [None]
  - CONVULSION [None]
  - DRUG INEFFECTIVE [None]
